FAERS Safety Report 18000284 (Version 1)
Quarter: 2020Q3

REPORT INFORMATION
  Report Type: Spontaneous
  Country: CA (occurrence: CA)
  Receive Date: 20200709
  Receipt Date: 20200709
  Transmission Date: 20201103
  Serious: Yes (Life-Threatening, Hospitalization)
  Sender: FDA-Public Use
  Company Number: CA-ACCORD-188459

PATIENT
  Sex: Male

DRUGS (27)
  1. ANAKINRA [Suspect]
     Active Substance: ANAKINRA
     Indication: RHEUMATOID ARTHRITIS
     Route: 065
  2. ARAVA [Suspect]
     Active Substance: LEFLUNOMIDE
     Indication: SYSTEMIC LUPUS ERYTHEMATOSUS
     Route: 065
  3. GOLD [Suspect]
     Active Substance: GOLD
     Indication: SYSTEMIC LUPUS ERYTHEMATOSUS
     Route: 065
  4. RITUXIMAB. [Suspect]
     Active Substance: RITUXIMAB
     Indication: PRODUCT USED FOR UNKNOWN INDICATION
     Route: 065
  5. METHOTREXATE. [Suspect]
     Active Substance: METHOTREXATE
     Indication: SYSTEMIC LUPUS ERYTHEMATOSUS
     Route: 065
  6. HUMIRA [Suspect]
     Active Substance: ADALIMUMAB
     Indication: SYSTEMIC LUPUS ERYTHEMATOSUS
     Route: 058
  7. ORENCIA [Suspect]
     Active Substance: ABATACEPT
     Indication: SYSTEMIC LUPUS ERYTHEMATOSUS
     Route: 042
  8. SODIUM AUROTHIOMALATE [Suspect]
     Active Substance: GOLD SODIUM THIOMALATE
     Indication: SYSTEMIC LUPUS ERYTHEMATOSUS
     Route: 065
  9. ENBREL [Suspect]
     Active Substance: ETANERCEPT
     Indication: SYSTEMIC LUPUS ERYTHEMATOSUS
     Route: 058
  10. HYDROXYCHLOROQUINE [Suspect]
     Active Substance: HYDROXYCHLOROQUINE
     Indication: SYSTEMIC LUPUS ERYTHEMATOSUS
     Route: 065
  11. ILARIS [Suspect]
     Active Substance: CANAKINUMAB
     Indication: SYSTEMIC LUPUS ERYTHEMATOSUS
     Route: 058
  12. MINOCYCLINE [Suspect]
     Active Substance: MINOCYCLINE HYDROCHLORIDE
     Indication: PRODUCT USED FOR UNKNOWN INDICATION
     Route: 065
  13. OXYCODONE/OXYCODONE HYDROCHLORIDE/OXYCODONE PECTINATE/OXYCODONE TEREPHTHALATE [Suspect]
     Active Substance: OXYCODONE
     Indication: PAIN
     Route: 065
  14. MINOCYCLINE [Suspect]
     Active Substance: MINOCYCLINE HYDROCHLORIDE
     Indication: PRODUCT USED FOR UNKNOWN INDICATION
     Route: 065
  15. METHOTREXATE. [Suspect]
     Active Substance: METHOTREXATE
     Indication: SYSTEMIC LUPUS ERYTHEMATOSUS
     Route: 065
  16. LEFLUNOMIDE. [Suspect]
     Active Substance: LEFLUNOMIDE
     Indication: SYSTEMIC LUPUS ERYTHEMATOSUS
     Route: 065
  17. PLAQUENIL [Suspect]
     Active Substance: HYDROXYCHLOROQUINE SULFATE
     Indication: SYSTEMIC LUPUS ERYTHEMATOSUS
     Route: 065
  18. XELJANZ [Suspect]
     Active Substance: TOFACITINIB CITRATE
     Indication: PRODUCT USED FOR UNKNOWN INDICATION
     Route: 048
  19. HUMIRA [Suspect]
     Active Substance: ADALIMUMAB
     Indication: SYSTEMIC LUPUS ERYTHEMATOSUS
     Route: 058
  20. ACTEMRA [Suspect]
     Active Substance: TOCILIZUMAB
     Indication: SYSTEMIC LUPUS ERYTHEMATOSUS
     Route: 065
  21. CANNABIS SATIVA [Suspect]
     Active Substance: CANNABIS SATIVA FLOWERING TOP
     Indication: PAIN
     Route: 065
  22. REMICADE [Suspect]
     Active Substance: INFLIXIMAB
     Indication: SYSTEMIC LUPUS ERYTHEMATOSUS
     Route: 042
  23. SULFASALAZINE. [Suspect]
     Active Substance: SULFASALAZINE
     Indication: SYSTEMIC LUPUS ERYTHEMATOSUS
     Route: 065
  24. ILARIS [Suspect]
     Active Substance: CANAKINUMAB
     Indication: SYSTEMIC LUPUS ERYTHEMATOSUS
     Route: 058
  25. APO?LEFLUNOMIDE [Suspect]
     Active Substance: LEFLUNOMIDE
     Indication: SYSTEMIC LUPUS ERYTHEMATOSUS
     Route: 065
  26. RITUXIMAB. [Suspect]
     Active Substance: RITUXIMAB
     Indication: PRODUCT USED FOR UNKNOWN INDICATION
     Route: 042
  27. HYDROXYCHLOROQUINE [Suspect]
     Active Substance: HYDROXYCHLOROQUINE
     Indication: SYSTEMIC LUPUS ERYTHEMATOSUS
     Route: 065

REACTIONS (28)
  - C-reactive protein increased [Recovered/Resolved]
  - Herpes zoster [Recovered/Resolved]
  - Intentional product use issue [Unknown]
  - Photosensitivity reaction [Recovered/Resolved]
  - Stomatitis [Recovered/Resolved]
  - Urticaria [Recovered/Resolved]
  - Diverticulitis [Recovered/Resolved]
  - Red blood cell sedimentation rate increased [Recovered/Resolved]
  - Drug hypersensitivity [Recovered/Resolved]
  - Haemoglobin decreased [Recovered/Resolved]
  - Intestinal sepsis [Recovered/Resolved]
  - Joint arthroplasty [Recovered/Resolved]
  - Knee arthroplasty [Recovered/Resolved]
  - Myocardial infarction [Recovered/Resolved]
  - Pulmonary embolism [Recovered/Resolved]
  - Sepsis [Recovered/Resolved]
  - Stent placement [Recovered/Resolved]
  - Interstitial lung disease [Recovered/Resolved]
  - Contraindicated product administered [Recovered/Resolved]
  - Drug ineffective [Unknown]
  - Joint swelling [Recovered/Resolved]
  - Pain [Recovered/Resolved]
  - Renal failure [Recovered/Resolved]
  - Deep vein thrombosis [Recovered/Resolved]
  - Feeling abnormal [Recovered/Resolved]
  - Thrombosis [Recovered/Resolved]
  - Apparent death [Unknown]
  - Drug intolerance [Unknown]
